FAERS Safety Report 24922431 (Version 1)
Quarter: 2025Q1

REPORT INFORMATION
  Report Type: Report from Study
  Country: IN (occurrence: IN)
  Receive Date: 20250204
  Receipt Date: 20250204
  Transmission Date: 20250409
  Serious: Yes (Hospitalization)
  Sender: ROCHE
  Company Number: IN-ROCHE-3560146

PATIENT
  Age: 67 Year
  Sex: Female

DRUGS (2)
  1. TECENTRIQ [Suspect]
     Active Substance: ATEZOLIZUMAB
     Indication: Hepatocellular carcinoma
     Route: 040
     Dates: start: 20240316
  2. TECENTRIQ [Suspect]
     Active Substance: ATEZOLIZUMAB
     Route: 040

REACTIONS (9)
  - Typhoid fever [Unknown]
  - Pyrexia [Unknown]
  - Hyperhidrosis [Unknown]
  - Pain [Unknown]
  - Weight decreased [Unknown]
  - Diarrhoea [Unknown]
  - Back pain [Unknown]
  - Spinal operation [Unknown]
  - Spinal disorder [Unknown]
